FAERS Safety Report 9695053 (Version 1)
Quarter: 2013Q1

REPORT INFORMATION
  Report Type: Spontaneous
  Country: FR (occurrence: None)
  Receive Date: 20130312
  Receipt Date: 20130312
  Transmission Date: 20140127
  Serious: Yes (Hospitalization)
  Sender: FDA-Public Use
  Company Number: 2013000042

PATIENT
  Age: 80 Year
  Sex: Female

DRUGS (7)
  1. ACEON (PERINDOPRIL ERBUMINE) TABLET [Suspect]
     Indication: PRODUCT USED FOR UNKNOWN INDICATION
     Route: 048
     Dates: end: 20121111
  2. PRADAXA (DABIGATRAN ETEXILATE MESILATE) [Suspect]
     Route: 048
     Dates: start: 20120919, end: 20121111
  3. ALDACTAZINE [Suspect]
     Indication: PRODUCT USED FOR UNKNOWN INDICATION
     Route: 048
     Dates: start: 20110329, end: 20121111
  4. METFORMINE [Suspect]
     Indication: PRODUCT USED FOR UNKNOWN INDICATION
  5. AMIODARONE (AMIODARONE) [Suspect]
     Indication: PRODUCT USED FOR UNKNOWN INDICATION
     Dosage: DURING 5 DAY/7
     Route: 048
     Dates: start: 20011105
  6. HEMIGOXINE NATIVELLE [Suspect]
     Indication: PRODUCT USED FOR UNKNOWN INDICATION
     Route: 048
     Dates: start: 20051216
  7. LEVOTHYROX (LEVOTHYROXINE SODIUM) INFUSION [Suspect]
     Indication: PRODUCT USED FOR UNKNOWN INDICATION
     Route: 048

REACTIONS (3)
  - Transient ischaemic attack [None]
  - C-reactive protein increased [None]
  - Renal failure [None]
